FAERS Safety Report 15790839 (Version 2)
Quarter: 2020Q2

REPORT INFORMATION
  Report Type: Spontaneous
  Country: US (occurrence: US)
  Receive Date: 20190104
  Receipt Date: 20200623
  Transmission Date: 20200713
  Serious: Yes (Hospitalization, Other)
  Sender: FDA-Public Use
  Company Number: US-BRISTOL-MYERS SQUIBB COMPANY-BMS-2018-122732

PATIENT
  Age: 7 Decade
  Sex: Male

DRUGS (1)
  1. NIVOLUMAB [Suspect]
     Active Substance: NIVOLUMAB
     Indication: SMALL CELL LUNG CANCER METASTATIC
     Dosage: 3 MG/KG, Q2WK
     Route: 065

REACTIONS (4)
  - Subacute cutaneous lupus erythematosus [Recovered/Resolved]
  - Polymyalgia rheumatica [Recovering/Resolving]
  - Dermatomyositis [Recovering/Resolving]
  - Intentional product use issue [Unknown]
